FAERS Safety Report 9919912 (Version 1)
Quarter: 2014Q1

REPORT INFORMATION
  Report Type: Spontaneous
  Country: US (occurrence: US)
  Receive Date: 20140224
  Receipt Date: 20140224
  Transmission Date: 20141002
  Serious: Yes (Death)
  Sender: FDA-Public Use
  Company Number: US-CUBIST PHARMACEUTICAL, INC.-2014CBST000266

PATIENT
  Sex: 0

DRUGS (10)
  1. CUBICIN [Suspect]
     Indication: ENTEROCOCCAL INFECTION
     Dosage: UNK, UNK, UNK
     Route: 065
  2. CUBICIN [Suspect]
     Indication: PSEUDOMONAS INFECTION
  3. CUBICIN [Suspect]
     Indication: STAPHYLOCOCCAL INFECTION
  4. CUBICIN [Suspect]
     Indication: OFF LABEL USE
  5. CEFEPIME [Concomitant]
     Indication: ENTEROCOCCAL INFECTION
     Dosage: UNK, UNK, UNK
     Route: 065
  6. CEFEPIME [Concomitant]
     Indication: PSEUDOMONAS INFECTION
  7. CEFEPIME [Concomitant]
     Indication: STAPHYLOCOCCAL INFECTION
  8. TOBRAMYCIN [Concomitant]
     Indication: ENTEROCOCCAL INFECTION
     Dosage: UNK, UNK, UNK
     Route: 065
  9. TOBRAMYCIN [Concomitant]
     Indication: PSEUDOMONAS INFECTION
  10. TOBRAMYCIN [Concomitant]
     Indication: STAPHYLOCOCCAL INFECTION

REACTIONS (1)
  - Bladder transitional cell carcinoma metastatic [Fatal]
